FAERS Safety Report 6249814-6 (Version None)
Quarter: 2009Q2

REPORT INFORMATION
  Report Type: 
  Country: None (occurrence: None)
  Receive Date: 20090629
  Receipt Date: 20090618
  Transmission Date: 20091009
  Serious: Yes (Hospitalization, Other)
  Sender: FDA-Public Use
  Company Number: PHHY2009GB25234

PATIENT
  Sex: Female

DRUGS (3)
  1. DICLOFENAC [Suspect]
     Indication: PAIN
  2. XARELTO [Suspect]
     Indication: KNEE ARTHROPLASTY
     Dosage: 10 MG/DAY
     Dates: start: 20090507, end: 20090513
  3. FLOXACILLIN [Concomitant]

REACTIONS (12)
  - ABDOMINAL DISCOMFORT [None]
  - BURNING SENSATION [None]
  - CONTUSION [None]
  - DYSPEPSIA [None]
  - GASTROOESOPHAGEAL REFLUX DISEASE [None]
  - HAEMATOMA [None]
  - JOINT SWELLING [None]
  - PAIN IN EXTREMITY [None]
  - POOR QUALITY SLEEP [None]
  - POST PROCEDURAL COMPLICATION [None]
  - POST PROCEDURAL HAEMORRHAGE [None]
  - WOUND SECRETION [None]
